FAERS Safety Report 13677828 (Version 2)
Quarter: 2017Q3

REPORT INFORMATION
  Report Type: Spontaneous
  Country: US (occurrence: US)
  Receive Date: 20170622
  Receipt Date: 20170807
  Transmission Date: 20171127
  Serious: No
  Sender: FDA-Public Use
  Company Number: US-GLAXOSMITHKLINE-US2017GSK096051

PATIENT
  Sex: Female

DRUGS (1)
  1. VENTOLIN HFA [Suspect]
     Active Substance: ALBUTEROL SULFATE
     Indication: PRODUCT USED FOR UNKNOWN INDICATION
     Dosage: 1 PUFF(S), PRN
     Route: 055

REACTIONS (7)
  - Humidity intolerance [Unknown]
  - Drug dose omission [Unknown]
  - Inability to afford medication [Unknown]
  - Dyspnoea [Unknown]
  - Underdose [Unknown]
  - Product quality issue [Unknown]
  - Stress [Unknown]
